FAERS Safety Report 8438375-9 (Version None)
Quarter: 2012Q2

REPORT INFORMATION
  Report Type: 
  Country: None (occurrence: None)
  Receive Date: 20120614
  Receipt Date: 20120612
  Transmission Date: 20120825
  Serious: Yes (Hospitalization)
  Sender: FDA-Public Use
  Company Number: FR-MERCK-1206FRA00053

PATIENT
  Age: 48 Year
  Sex: Female

DRUGS (10)
  1. LEVOTHYROXINE SODIUM [Concomitant]
     Indication: HYPOTHYROIDISM
     Route: 048
  2. IBUPROFEN [Suspect]
     Indication: TOOTHACHE
     Route: 048
     Dates: start: 20120326, end: 20120401
  3. TRAMADOL HYDROCHLORIDE AND ACETAMINOPHEN [Suspect]
     Indication: TOOTHACHE
     Route: 048
     Dates: start: 20120326, end: 20120401
  4. PRAZEPAM [Concomitant]
     Route: 048
  5. ALBUTEROL SULATE [Suspect]
     Indication: ASTHMA
     Route: 055
     Dates: start: 20080101
  6. GUAIETOLIN [Concomitant]
     Route: 048
  7. BUDESONIDE [Suspect]
     Indication: ASTHMA
     Route: 055
     Dates: start: 20060101
  8. DESLORATADINE [Concomitant]
     Indication: ASTHMA
     Route: 048
  9. INSULIN LISPRO [Concomitant]
     Indication: TYPE 1 DIABETES MELLITUS
     Route: 058
  10. SINGULAIR [Suspect]
     Indication: ASTHMA
     Route: 048
     Dates: start: 20120326

REACTIONS (1)
  - CEREBRAL HAEMORRHAGE [None]
